FAERS Safety Report 9343006 (Version 2)
Quarter: 2014Q1

REPORT INFORMATION
  Report Type: Spontaneous
  Country: US (occurrence: US)
  Receive Date: 20130611
  Receipt Date: 20140305
  Transmission Date: 20141002
  Serious: Yes (Hospitalization)
  Sender: FDA-Public Use
  Company Number: US-B.I. PHARMACEUTICALS,INC./RIDGEFIELD-2013-BI-16245BP

PATIENT
  Sex: Female
  Weight: 77.11 kg

DRUGS (10)
  1. PRADAXA [Suspect]
     Indication: CEREBROVASCULAR ACCIDENT PROPHYLAXIS
     Route: 048
     Dates: start: 20110727, end: 20120103
  2. PRADAXA [Suspect]
     Indication: THROMBOSIS PROPHYLAXIS
  3. ASPIRIN [Suspect]
     Indication: PRODUCT USED FOR UNKNOWN INDICATION
     Dosage: 81 MG
     Route: 048
  4. ATENOLOL [Concomitant]
     Dosage: 50 MG
     Route: 048
     Dates: start: 2004
  5. ESTROGEN [Concomitant]
     Dosage: 0.5 MG
     Route: 048
     Dates: start: 2004
  6. PAXIL [Concomitant]
     Dosage: 20 MG
     Route: 048
     Dates: start: 2004
  7. PRAVACHOL [Concomitant]
     Dosage: 20 MG
     Route: 048
     Dates: start: 2004
  8. MULTAQ [Concomitant]
     Dosage: 800 MG
     Route: 065
  9. EXFORGE [Concomitant]
     Route: 048
  10. OMEPRAZOLE [Concomitant]
     Route: 065

REACTIONS (2)
  - Gastrointestinal haemorrhage [Recovered/Resolved]
  - Haemorrhagic anaemia [Recovered/Resolved]
